FAERS Safety Report 22145469 (Version 2)
Quarter: 2023Q1

REPORT INFORMATION
  Report Type: Spontaneous
  Country: CZ (occurrence: CZ)
  Receive Date: 20230328
  Receipt Date: 20230330
  Transmission Date: 20230417
  Serious: Yes (Hospitalization, Other)
  Sender: FDA-Public Use
  Company Number: CZ-Desitin-2023-00606

PATIENT
  Age: 42 Year
  Sex: Male

DRUGS (16)
  1. CLOZAPINE [Suspect]
     Active Substance: CLOZAPINE
     Indication: Schizophrenia
     Dosage: DAY 4, DOSE DIVIDED INTO 2SINGLEDOSE AT 8 AM, 9 PM
     Route: 065
  2. CLOZAPINE [Suspect]
     Active Substance: CLOZAPINE
     Dosage: DAY 1,DOSE DIVIDED INTO 2SINGLEDOSES AT 8AM, 9PM
     Route: 065
  3. CLOZAPINE [Suspect]
     Active Substance: CLOZAPINE
     Dosage: DAY9+10,DOSEDIVIDED INTO 2SINGLEDOSE AT8 AM,9 PM
     Route: 065
  4. CLOZAPINE [Suspect]
     Active Substance: CLOZAPINE
     Dosage: DAYS 6+7,DOSEWASDIVIDED 2SINGLEDOSE AT 8 AM,9 PM
     Route: 065
  5. CLOZAPINE [Suspect]
     Active Substance: CLOZAPINE
     Dosage: DAY 2,DOSE DIVIDED INTO 2 SINGLEDOSE AT 8AM, 9PM
     Route: 065
  6. CLOZAPINE [Suspect]
     Active Substance: CLOZAPINE
     Dosage: DAY 3,DOSE DIVIDED INTO 2 SINGLE DOSE AT 8AM, 9PM
     Route: 065
  7. CLOZAPINE [Suspect]
     Active Substance: CLOZAPINE
     Dosage: DAY 11,DOSE DIVIDED INTO 2SINGLEDOSE AT 8AM, 9PM
     Route: 065
  8. CLOZAPINE [Suspect]
     Active Substance: CLOZAPINE
     Dosage: DAY 5, DOSE DIVIDED INTO 2 SINGLEDOSE AT 8AM, 9PM
     Route: 065
  9. CLOZAPINE [Suspect]
     Active Substance: CLOZAPINE
     Dosage: DAY 8, DOSE DIVIDED INTO 2 SINGLEDOSE AT 8AM, 9PM
     Route: 065
  10. OLANZAPINE [Suspect]
     Active Substance: OLANZAPINE
     Indication: Schizophrenia
     Dosage: UNK (RESTARTED)
     Route: 065
  11. OLANZAPINE [Suspect]
     Active Substance: OLANZAPINE
     Dosage: UNK
     Route: 065
  12. RISPERIDONE [Concomitant]
     Active Substance: RISPERIDONE
     Indication: Schizophrenia
     Dosage: UNK
     Route: 065
  13. CARIPRAZINE HYDROCHLORIDE [Concomitant]
     Active Substance: CARIPRAZINE HYDROCHLORIDE
     Indication: Schizophrenia
     Dosage: UNK
     Route: 065
  14. SULPIRIDE [Concomitant]
     Active Substance: SULPIRIDE
     Indication: Schizophrenia
     Dosage: UNK
     Route: 065
  15. PALIPERIDONE [Concomitant]
     Active Substance: PALIPERIDONE
     Indication: Schizophrenia
     Dosage: UNK
     Route: 065
  16. QUETIAPINE [Concomitant]
     Active Substance: QUETIAPINE
     Indication: Schizophrenia
     Dosage: UNK
     Route: 065

REACTIONS (5)
  - Psychotic symptom [Recovering/Resolving]
  - Drug level increased [Recovering/Resolving]
  - Myocarditis [Unknown]
  - Antipsychotic drug level above therapeutic [Unknown]
  - Drug titration error [Unknown]
